FAERS Safety Report 8661789 (Version 2)
Quarter: 2013Q2

REPORT INFORMATION
  Report Type: Spontaneous
  Country: BR (occurrence: BR)
  Receive Date: 20120712
  Receipt Date: 20130626
  Transmission Date: 20140414
  Serious: Yes (Hospitalization)
  Sender: FDA-Public Use
  Company Number: BR-PFIZER INC-2012163866

PATIENT
  Age: 18 Year
  Sex: Male

DRUGS (3)
  1. AMLODIPINE BESILATE [Suspect]
     Dosage: 30 TABLETS OF AMLODIPINE 5 MG
     Route: 048
  2. FLUNARIZINE [Concomitant]
     Dosage: 25 FLUNARIZINE 10 MG
  3. HYDROCHLOROTHIAZIDE [Concomitant]
     Dosage: 12 HYDROCHLOROTHIAZIDE 25 MG

REACTIONS (11)
  - Suicide attempt [Recovered/Resolved]
  - Overdose [Recovered/Resolved]
  - Hypotension [Recovered/Resolved]
  - Supraventricular extrasystoles [Recovered/Resolved]
  - Electrocardiogram ST segment depression [Recovered/Resolved]
  - Electrocardiogram PR prolongation [Recovered/Resolved]
  - Atrioventricular block [Recovered/Resolved]
  - Bundle branch block left [Recovered/Resolved]
  - Hyperglycaemia [Recovered/Resolved]
  - Anuria [Recovered/Resolved]
  - Pulmonary oedema [Recovered/Resolved]
